FAERS Safety Report 17431437 (Version 1)
Quarter: 2020Q1

REPORT INFORMATION
  Report Type: Spontaneous
  Country: CA (occurrence: CA)
  Receive Date: 20200218
  Receipt Date: 20200218
  Transmission Date: 20200409
  Serious: Yes (Hospitalization)
  Sender: FDA-Public Use
  Company Number: CA-TEVA-2020-CA-1187121

PATIENT
  Age: 42 Year
  Sex: Male

DRUGS (2)
  1. PREDNISONE. [Suspect]
     Active Substance: PREDNISONE
     Indication: PRODUCT USED FOR UNKNOWN INDICATION
     Route: 065
  2. SALBUTAMOL [Suspect]
     Active Substance: ALBUTEROL
     Indication: PRODUCT USED FOR UNKNOWN INDICATION
     Route: 065

REACTIONS (9)
  - Impaired quality of life [Unknown]
  - Cough [Unknown]
  - Sinusitis [Unknown]
  - Mouth breathing [Unknown]
  - Sputum discoloured [Unknown]
  - Asthma [Unknown]
  - Loss of employment [Unknown]
  - Nasal congestion [Unknown]
  - Dyspnoea [Unknown]
